FAERS Safety Report 4733882-4 (Version None)
Quarter: 2005Q3

REPORT INFORMATION
  Report Type: 
  Country: None (occurrence: None)
  Receive Date: 20050729
  Receipt Date: 20050725
  Transmission Date: 20060218
  Serious: Yes (Other)
  Sender: FDA-Public Use
  Company Number: 200510653BVD

PATIENT
  Age: 70 Year
  Sex: Female
  Weight: 56 kg

DRUGS (3)
  1. AVELOX [Suspect]
     Indication: PNEUMONIA
     Dosage: SEE IMAGE
     Route: 048
     Dates: start: 20041101
  2. AVELOX [Suspect]
     Indication: PNEUMONIA
     Dosage: SEE IMAGE
     Route: 048
     Dates: start: 20041227
  3. AVELOX [Suspect]
     Indication: PNEUMONIA
     Dosage: SEE IMAGE
     Route: 048
     Dates: start: 20050103

REACTIONS (7)
  - ARTHROPATHY [None]
  - BALANCE DISORDER [None]
  - BONE DISORDER [None]
  - HYPOAESTHESIA [None]
  - MUSCLE ATROPHY [None]
  - PAIN IN EXTREMITY [None]
  - TENDON RUPTURE [None]
